FAERS Safety Report 14936332 (Version 2)
Quarter: 2019Q2

REPORT INFORMATION
  Report Type: Spontaneous
  Country: ZA (occurrence: ZA)
  Receive Date: 20180524
  Receipt Date: 20190507
  Transmission Date: 20190711
  Serious: Yes (Other)
  Sender: FDA-Public Use
  Company Number: ZA-AMGEN-ZAFSP2018070306

PATIENT
  Age: 55 Year
  Sex: Female
  Weight: 110 kg

DRUGS (1)
  1. ENBREL [Suspect]
     Active Substance: ETANERCEPT
     Indication: PRODUCT USED FOR UNKNOWN INDICATION
     Dosage: 50 MILLIGRAM, QWK
     Route: 058

REACTIONS (13)
  - C-reactive protein increased [Recovered/Resolved]
  - Hyperthyroidism [Unknown]
  - Anion gap decreased [Recovered/Resolved]
  - B-lymphocyte count increased [Unknown]
  - Monocyte count increased [Unknown]
  - Carbon dioxide decreased [Unknown]
  - Aspartate aminotransferase increased [Unknown]
  - Mean cell haemoglobin increased [Unknown]
  - Antinuclear antibody positive [Unknown]
  - Platelet count increased [Unknown]
  - Alanine aminotransferase increased [Unknown]
  - Mean cell volume increased [Unknown]
  - Gamma-glutamyltransferase increased [Unknown]

NARRATIVE: CASE EVENT DATE: 20160701
